FAERS Safety Report 9649458 (Version 1)
Quarter: 2013Q3

REPORT INFORMATION
  Report Type: Spontaneous
  Country: US (occurrence: None)
  Receive Date: 20130924
  Receipt Date: 20130924
  Transmission Date: 20140515
  Serious: Yes (Other)
  Sender: FDA-Public Use
  Company Number: 1387569

PATIENT
  Sex: Male

DRUGS (1)
  1. LIDOCAINE HCL [Suspect]

REACTIONS (1)
  - Cardiac arrest [None]
